FAERS Safety Report 12833617 (Version 1)
Quarter: 2016Q4

REPORT INFORMATION
  Report Type: Spontaneous
  Country: FR (occurrence: FR)
  Receive Date: 20161010
  Receipt Date: 20161010
  Transmission Date: 20170207
  Serious: Yes (Other)
  Sender: FDA-Public Use
  Company Number: FR-SA-2016SA183030

PATIENT
  Age: 79 Year
  Sex: Female
  Weight: 76 kg

DRUGS (19)
  1. CORDARONE [Suspect]
     Active Substance: AMIODARONE HYDROCHLORIDE
     Dosage: FREQUENCY THURSDAY, FRIDAY, SATURDAY AND SUNDAY
     Route: 065
  2. HYPERIUM [Concomitant]
     Active Substance: RILMENIDINE PHOSPHATE
     Indication: HYPERTENSION
     Route: 065
  3. FOLIC ACID. [Concomitant]
     Active Substance: FOLIC ACID
     Route: 065
  4. BRICANYL [Concomitant]
     Active Substance: TERBUTALINE SULFATE
     Route: 065
  5. ERYTHROMYCIN. [Suspect]
     Active Substance: ERYTHROMYCIN
     Route: 048
     Dates: start: 20160723, end: 20160810
  6. DIFFU K [Concomitant]
     Active Substance: POTASSIUM CHLORIDE
     Route: 065
  7. UVEDOSE [Concomitant]
     Active Substance: CHOLECALCIFEROL
     Route: 065
  8. TAHOR [Concomitant]
     Active Substance: ATORVASTATIN CALCIUM
     Route: 065
  9. LOXEN [Concomitant]
     Active Substance: NICARDIPINE HYDROCHLORIDE
     Indication: HYPERTENSION
     Route: 065
  10. LASILIX RETARD [Concomitant]
     Active Substance: FUROSEMIDE
     Route: 065
  11. INEXIUM [Concomitant]
     Active Substance: ESOMEPRAZOLE
     Route: 065
  12. FUMAFER [Concomitant]
     Active Substance: FERROUS FUMARATE
     Route: 065
  13. METHOTREXATE. [Concomitant]
     Active Substance: METHOTREXATE
     Route: 065
  14. LEVOTHYROX [Concomitant]
     Active Substance: LEVOTHYROXINE
     Dosage: DOSE 25
     Route: 065
  15. CACIT D3 [Concomitant]
     Active Substance: CALCIUM\CHOLECALCIFEROL
     Dosage: DOSE 1000
     Route: 065
  16. KARDEGIC [Concomitant]
     Active Substance: ASPIRIN LYSINE
     Route: 065
  17. CORTANCYL [Concomitant]
     Active Substance: PREDNISONE
     Route: 065
  18. ARAVA [Suspect]
     Active Substance: LEFLUNOMIDE
     Route: 065
  19. PARACETAMOL [Concomitant]
     Active Substance: ACETAMINOPHEN
     Route: 065

REACTIONS (1)
  - Electrocardiogram QT prolonged [Recovered/Resolved]

NARRATIVE: CASE EVENT DATE: 201607
